FAERS Safety Report 9106400 (Version 2)
Quarter: 2013Q2

REPORT INFORMATION
  Report Type: Report from Study
  Country: US (occurrence: US)
  Receive Date: 20130219
  Receipt Date: 20130619
  Transmission Date: 20140414
  Serious: Yes (Hospitalization)
  Sender: FDA-Public Use
  Company Number: US-ROCHE-1190612

PATIENT
  Sex: Female
  Weight: 63.56 kg

DRUGS (7)
  1. ACTEMRA [Suspect]
     Indication: RHEUMATOID ARTHRITIS
     Route: 042
     Dates: start: 201208
  2. ACTEMRA [Suspect]
     Dosage: LAST INFUSION ON 07/FEB/2013 PRIOR TO SAE
     Route: 042
     Dates: start: 201209
  3. TERAZOSIN [Concomitant]
     Indication: HYPERTENSION
  4. CARVEDILOL [Concomitant]
     Indication: HYPERTENSION
  5. CLOPIDOGREL [Concomitant]
     Indication: HYPERTENSION
  6. AMLODIPINE [Concomitant]
     Route: 065
  7. BENAZEPRIL [Concomitant]
     Route: 065

REACTIONS (6)
  - Chest pain [Recovered/Resolved]
  - Respiratory disorder [Not Recovered/Not Resolved]
  - Sinus disorder [Not Recovered/Not Resolved]
  - White blood cell count decreased [Not Recovered/Not Resolved]
  - Facial pain [Not Recovered/Not Resolved]
  - Headache [Not Recovered/Not Resolved]
